FAERS Safety Report 10648619 (Version 1)
Quarter: 2014Q4

REPORT INFORMATION
  Report Type: Spontaneous
  Country: US (occurrence: None)
  Receive Date: 20141210
  Receipt Date: 20141210
  Transmission Date: 20150529
  Serious: Yes (Other)
  Sender: FDA-Public Use
  Company Number: 2014SA163842

PATIENT
  Sex: Male

DRUGS (1)
  1. CAPZASIN HP ARTHRITIS PAIN RELIEF [Suspect]
     Active Substance: CAPSAICIN
     Dates: start: 201411, end: 201411

REACTIONS (2)
  - Pain [None]
  - Chemical injury [None]

NARRATIVE: CASE EVENT DATE: 201411
